FAERS Safety Report 7519144-0 (Version None)
Quarter: 2011Q2

REPORT INFORMATION
  Report Type: 
  Country: None (occurrence: None)
  Receive Date: 20110602
  Receipt Date: 20110527
  Transmission Date: 20111010
  Serious: Yes (Hospitalization)
  Sender: FDA-Public Use
  Company Number: BR-US-EMD SERONO, INC.-7062151

PATIENT
  Sex: Female

DRUGS (2)
  1. REBIF [Suspect]
     Indication: RELAPSING-REMITTING MULTIPLE SCLEROSIS
     Dates: start: 20091201
  2. SERTRALINE HYDROCHLORIDE [Concomitant]

REACTIONS (9)
  - WEIGHT DECREASED [None]
  - HEADACHE [None]
  - INJECTION SITE INJURY [None]
  - ATAXIA [None]
  - TREMOR [None]
  - NYSTAGMUS [None]
  - DECREASED APPETITE [None]
  - CENTRAL NERVOUS SYSTEM LESION [None]
  - FALL [None]
